FAERS Safety Report 6387371-4 (Version None)
Quarter: 2009Q3

REPORT INFORMATION
  Report Type: 
  Country: None (occurrence: None)
  Receive Date: 20090930
  Receipt Date: 20090914
  Transmission Date: 20100115
  Serious: Yes (Other)
  Sender: FDA-Public Use
  Company Number: 2008AL011328

PATIENT
  Age: 73 Year
  Sex: Female
  Weight: 79.3795 kg

DRUGS (11)
  1. DIGOXIN [Suspect]
     Indication: ARRHYTHMIA
     Dosage: 0.25MG, PO
     Route: 048
  2. DIGOXIN [Suspect]
     Indication: CARDIAC DISORDER
     Dosage: 0.25MG, PO
     Route: 048
  3. DIGOXIN [Suspect]
     Indication: CARDIAC FAILURE
     Dosage: 0.25MG, PO
     Route: 048
  4. AZITHROMYCIN [Concomitant]
  5. OXYBUTYNIN [Concomitant]
  6. DILTIAZEM [Concomitant]
  7. FUROSEMIDE [Concomitant]
  8. OMEPRAZOLE [Concomitant]
  9. LISINOPRIL [Concomitant]
  10. HYDROCHLOROTHIAZIDE [Concomitant]
  11. DILTIAZEM HCL [Concomitant]

REACTIONS (11)
  - ANXIETY [None]
  - COUGH [None]
  - DIZZINESS [None]
  - ECONOMIC PROBLEM [None]
  - FATIGUE [None]
  - GAIT DISTURBANCE [None]
  - MULTIPLE INJURIES [None]
  - PAIN [None]
  - THERAPEUTIC AGENT TOXICITY [None]
  - TINNITUS [None]
  - UNEVALUABLE EVENT [None]
